FAERS Safety Report 5194190-3 (Version None)
Quarter: 2006Q4

REPORT INFORMATION
  Report Type: 
  Country: None (occurrence: None)
  Receive Date: 20061222
  Receipt Date: 20061214
  Transmission Date: 20070319
  Serious: Yes (Other)
  Sender: FDA-Public Use
  Company Number: 233900

PATIENT
  Age: 50 Year
  Sex: Female

DRUGS (1)
  1. RAPTIVA [Suspect]
     Indication: PSORIASIS
     Dates: start: 20050701, end: 20061201

REACTIONS (2)
  - MYCOSIS FUNGOIDES [None]
  - SKIN LESION [None]
